FAERS Safety Report 8814892 (Version 2)
Quarter: 2012Q4

REPORT INFORMATION
  Report Type: 
  Country: AU (occurrence: AU)
  Receive Date: 20120928
  Receipt Date: 20121012
  Transmission Date: 20130627
  Serious: Yes (Death)
  Sender: FDA-Public Use
  Company Number: AU-B.I. PHARMACEUTICALS,INC./RIDGEFIELD-2012-AU-01658AU

PATIENT
  Sex: Female

DRUGS (11)
  1. PRADAXA [Suspect]
     Indication: ATRIAL FIBRILLATION
     Dosage: 220 mg
     Dates: start: 201110
  2. AMIODARONE [Concomitant]
  3. AVAPRO [Concomitant]
  4. FOLIC ACID [Concomitant]
  5. NEBILET [Concomitant]
  6. OROXINE [Concomitant]
  7. PANADOL OSTEO [Concomitant]
  8. SEREPAX [Concomitant]
  9. SERETIDE [Concomitant]
  10. VENTOLIN [Concomitant]
  11. ZOCOR [Concomitant]

REACTIONS (5)
  - Pneumonia [Fatal]
  - Dyspnoea [Unknown]
  - Cough [Unknown]
  - Pulmonary oedema [Unknown]
  - Post procedural haemorrhage [Recovered/Resolved]
